FAERS Safety Report 7122632-2 (Version None)
Quarter: 2010Q4

REPORT INFORMATION
  Report Type: 
  Country: None (occurrence: None)
  Receive Date: 20101112
  Receipt Date: 20101028
  Transmission Date: 20110411
  Serious: Yes (Disabling)
  Sender: FDA-Public Use
  Company Number: 021547

PATIENT
  Sex: Female
  Weight: 100 kg

DRUGS (6)
  1. KEPPRA [Suspect]
     Indication: EPILEPSY
     Dosage: (4000 MG, 1000 MG AT BREAKFAST AND LUNCH AND 2000 MG AT DINNER ORAL) ; (3000 MG ORAL) ; (ORAL)
     Route: 048
  2. KEPPRA [Suspect]
     Indication: EPILEPSY
     Dosage: (4000 MG, 1000 MG AT BREAKFAST AND LUNCH AND 2000 MG AT DINNER ORAL) ; (3000 MG ORAL) ; (ORAL)
     Route: 048
     Dates: start: 20090101
  3. SERTRALINE [Concomitant]
  4. TOPIRAMATE [Concomitant]
  5. CLOBAZAM [Concomitant]
  6. CARBAMAZEPINE [Concomitant]

REACTIONS (15)
  - ASTHENIA [None]
  - CONDITION AGGRAVATED [None]
  - CONVULSION [None]
  - DEPRESSION [None]
  - DIARRHOEA [None]
  - DIZZINESS [None]
  - FATIGUE [None]
  - FEELING HOT [None]
  - HEADACHE [None]
  - INSOMNIA [None]
  - MALAISE [None]
  - NAUSEA [None]
  - NIGHTMARE [None]
  - THERAPY REGIMEN CHANGED [None]
  - VOMITING [None]
